FAERS Safety Report 4348246-5 (Version None)
Quarter: 2004Q2

REPORT INFORMATION
  Report Type: 
  Country: None (occurrence: None)
  Receive Date: 20040422
  Receipt Date: 20040414
  Transmission Date: 20050107
  Serious: No
  Sender: FDA-Public Use
  Company Number: 2004PK00673

PATIENT
  Age: 71 Year
  Sex: Male

DRUGS (4)
  1. ZESTORETIC [Suspect]
     Indication: ESSENTIAL HYPERTENSION
     Dates: end: 20040201
  2. OXYCONTIN [Suspect]
     Indication: BACK PAIN
     Dosage: 20 MG DAILY PO
     Route: 048
     Dates: start: 20040221, end: 20040224
  3. VOLTAREN [Suspect]
     Indication: BACK PAIN
  4. SYMFONA N [Concomitant]

REACTIONS (6)
  - ABDOMINAL PAIN UPPER [None]
  - DRUG INTERACTION [None]
  - HEADACHE [None]
  - HYPONATRAEMIA [None]
  - MUSCLE CRAMP [None]
  - NAUSEA [None]
